FAERS Safety Report 4833014-8 (Version None)
Quarter: 2005Q4

REPORT INFORMATION
  Report Type: 
  Country: None (occurrence: None)
  Receive Date: 20051121
  Receipt Date: 20051114
  Transmission Date: 20060501
  Serious: Yes (Death, Life-Threatening)
  Sender: FDA-Public Use
  Company Number: PHHO2005DE17844

PATIENT
  Age: 56 Year
  Sex: Male

DRUGS (19)
  1. COTRIM [Concomitant]
     Dosage: UNK, UNK
     Dates: start: 20050524
  2. DACLIZUMAB [Suspect]
     Indication: LUNG TRANSPLANT
     Dosage: DOUBLE BLIND
     Route: 042
     Dates: start: 20050520, end: 20050520
  3. DACLIZUMAB [Suspect]
     Dosage: UNK, ONCE/SINGLE
     Route: 042
     Dates: start: 20050711, end: 20050711
  4. MYCOPHENOLATE MOFETIL [Suspect]
     Indication: LUNG TRANSPLANT
     Dosage: 1000 MG, BID
     Route: 048
     Dates: start: 20050521
  5. MYCOPHENOLATE MOFETIL [Suspect]
     Dosage: 250 MG, TID
     Route: 048
     Dates: start: 20050920
  6. PREDNISOLONE [Suspect]
     Indication: LUNG TRANSPLANT
     Route: 048
     Dates: start: 20050521
  7. ITRACONAZOLE [Concomitant]
     Dosage: UNK, UNK
     Dates: start: 20050520
  8. VALGANCICLOVIR [Concomitant]
     Dosage: UNK, UNK
     Dates: start: 20050524, end: 20050910
  9. PANTOPRAZOLE [Concomitant]
     Dosage: UNK, UNK
     Dates: start: 20050523
  10. VIGANTOLETTEN [Concomitant]
     Dosage: UNK, UNK
     Dates: start: 20050523
  11. CALCIUM GLUCONATE [Concomitant]
     Dosage: UNK, UNK
     Dates: start: 20050522
  12. AMPHO-MORONAL [Concomitant]
     Dosage: UNK, UNK
     Dates: start: 20050520
  13. MAGNESIUM [Concomitant]
     Dosage: UNK, UNK
     Dates: start: 20050522
  14. DIHYDROCODEINE [Concomitant]
     Dates: start: 20050627, end: 20050913
  15. K CL TAB [Concomitant]
     Dates: start: 20050627, end: 20050815
  16. SALBUTAMOL [Concomitant]
     Dosage: UNK, UNK
     Dates: start: 20050520
  17. IPRATROPIUM BROMIDE [Concomitant]
     Dates: start: 20050627, end: 20050811
  18. ACYCLOVIR [Concomitant]
     Dosage: UNK, UNK
     Dates: start: 20050914
  19. NEORAL [Suspect]
     Indication: LUNG TRANSPLANT
     Dosage: TAPERED DOSE
     Route: 048
     Dates: start: 20050521

REACTIONS (12)
  - EPSTEIN-BARR VIRUS ANTIBODY POSITIVE [None]
  - LUNG NEOPLASM [None]
  - LYMPHADENOPATHY [None]
  - LYMPHOMA [None]
  - METABOLIC DISORDER [None]
  - NAUSEA [None]
  - PNEUMOTHORAX [None]
  - PULMONARY HILUM MASS [None]
  - PYREXIA [None]
  - SHOCK [None]
  - TRANSPLANT FAILURE [None]
  - TRANSPLANT REJECTION [None]
